FAERS Safety Report 12091265 (Version 1)
Quarter: 2016Q1

REPORT INFORMATION
  Report Type: Spontaneous
  Country: FR (occurrence: FR)
  Receive Date: 20160218
  Receipt Date: 20160218
  Transmission Date: 20160526
  Serious: Yes (Other)
  Sender: FDA-Public Use
  Company Number: FR-MYLANLABS-2016M1006095

PATIENT

DRUGS (1)
  1. ACICLOVIR [Suspect]
     Active Substance: ACYCLOVIR
     Indication: MENINGOMYELITIS HERPES
     Dosage: 30 MG/KG/DAY FOR 3 WEEKS
     Route: 042

REACTIONS (1)
  - Acute kidney injury [Recovered/Resolved]
